FAERS Safety Report 9337710 (Version 1)
Quarter: 2013Q2

REPORT INFORMATION
  Report Type: Spontaneous
  Country: US (occurrence: US)
  Receive Date: 20130607
  Receipt Date: 20130607
  Transmission Date: 20140414
  Serious: Yes (Hospitalization, Other)
  Sender: FDA-Public Use
  Company Number: US-AMGEN-USASP2013040538

PATIENT
  Age: 48 Year
  Sex: Female
  Weight: 105.22 kg

DRUGS (6)
  1. ENBREL [Suspect]
     Indication: RHEUMATOID ARTHRITIS
     Dosage: UNK
     Route: 065
     Dates: end: 201212
  2. HUMIRA [Concomitant]
     Indication: RHEUMATOID ARTHRITIS
     Dosage: 40 MG, 1 IN 2 WEEKS
     Dates: start: 2003
  3. HUMIRA [Concomitant]
     Dosage: 40 MG, 1 IN 2 WEEKS
     Dates: start: 2008
  4. CARVEDILOL [Concomitant]
     Indication: HYPERTENSION
     Dosage: UNK
  5. LISINOPRIL [Concomitant]
     Indication: HYPERTENSION
     Dosage: UNK
  6. BABY ASPIRIN [Concomitant]
     Dosage: UNK

REACTIONS (7)
  - Intervertebral disc degeneration [Recovered/Resolved]
  - Dyspnoea [Recovered/Resolved]
  - Cardiac valve disease [Recovered/Resolved]
  - Exostosis [Unknown]
  - Incision site infection [Recovered/Resolved]
  - Drug effect decreased [Unknown]
  - Pain [Unknown]
